FAERS Safety Report 12343167 (Version 1)
Quarter: 2016Q2

REPORT INFORMATION
  Report Type: Spontaneous
  Country: JP (occurrence: JP)
  Receive Date: 20160506
  Receipt Date: 20160506
  Transmission Date: 20160815
  Serious: Yes (Other)
  Sender: FDA-Public Use
  Company Number: JP-PFIZER INC-2016236855

PATIENT
  Age: 84 Year
  Sex: Male

DRUGS (3)
  1. ASPIRIN /00002701/ [Concomitant]
     Active Substance: ASPIRIN
  2. CEFEPIME [Concomitant]
     Active Substance: CEFEPIME HYDROCHLORIDE
     Dosage: 2 G, DAILY
     Route: 042
  3. CLINDAMYCIN PHOSPHATE. [Suspect]
     Active Substance: CLINDAMYCIN PHOSPHATE
     Indication: SEPTIC SHOCK
     Dosage: 1800 MG, DAILY
     Route: 042

REACTIONS (1)
  - Enterocolitis haemorrhagic [Recovered/Resolved]
